FAERS Safety Report 6936664-8 (Version None)
Quarter: 2010Q3

REPORT INFORMATION
  Report Type: 
  Country: None (occurrence: None)
  Receive Date: 20100823
  Receipt Date: 20100812
  Transmission Date: 20110219
  Serious: Yes (Other)
  Sender: FDA-Public Use
  Company Number: US-ROCHE-722086

PATIENT
  Sex: Female
  Weight: 63 kg

DRUGS (1)
  1. AVASTIN [Suspect]
     Route: 042
     Dates: start: 20100101, end: 20100201

REACTIONS (3)
  - BILIARY CIRRHOSIS PRIMARY [None]
  - CHORIORETINOPATHY [None]
  - HYPERTENSION [None]
